FAERS Safety Report 11832325 (Version 5)
Quarter: 2016Q1

REPORT INFORMATION
  Report Type: Report from Study
  Country: US (occurrence: US)
  Receive Date: 20151214
  Receipt Date: 20160114
  Transmission Date: 20160525
  Serious: Yes (Death, Hospitalization, Other)
  Sender: FDA-Public Use
  Company Number: US-BRISTOL-MYERS SQUIBB COMPANY-BMS-2015-085807

PATIENT
  Age: 79 Year
  Sex: Male
  Weight: 92 kg

DRUGS (2)
  1. CETUXIMAB [Suspect]
     Active Substance: CETUXIMAB
     Indication: NON-SMALL CELL LUNG CANCER
     Dosage: 500 MG/M2, QCYCLE
     Route: 042
     Dates: start: 20151009, end: 20151120
  2. EXTERNAL-AFATINIB [Suspect]
     Active Substance: AFATINIB
     Indication: NON-SMALL CELL LUNG CANCER
     Dosage: 40 MG, QD
     Route: 048
     Dates: start: 20151106, end: 20151203

REACTIONS (8)
  - Hypoalbuminaemia [Unknown]
  - Dehydration [Unknown]
  - Rash maculo-papular [Unknown]
  - Fatigue [Unknown]
  - Sepsis [Unknown]
  - Cardio-respiratory arrest [Fatal]
  - Hyperglycaemia [Unknown]
  - Sinusitis [Unknown]

NARRATIVE: CASE EVENT DATE: 20151125
